FAERS Safety Report 4882439-3 (Version None)
Quarter: 2005Q4

REPORT INFORMATION
  Report Type: 
  Country: None (occurrence: None)
  Receive Date: 20051201
  Receipt Date: 20050929
  Transmission Date: 20060501
  Serious: No
  Sender: FDA-Public Use
  Company Number: 2005PV002673

PATIENT
  Age: 61 Year
  Sex: Female

DRUGS (2)
  1. BYETTA [Suspect]
     Dosage: 10 MCG;BID;SC; 5 MCG;SC
     Route: 058
     Dates: start: 20050801, end: 20050831
  2. BYETTA [Suspect]
     Dosage: 10 MCG;BID;SC; 5 MCG;SC
     Route: 058
     Dates: start: 20050901

REACTIONS (4)
  - DRUG EFFECT DECREASED [None]
  - INJECTION SITE PAIN [None]
  - MEDICATION ERROR [None]
  - UNDERDOSE [None]
